APPROVED DRUG PRODUCT: TORSEMIDE
Active Ingredient: TORSEMIDE
Strength: 5MG
Dosage Form/Route: TABLET;ORAL
Application: A076226 | Product #001 | TE Code: AB
Applicant: STRIDES PHARMA INTERNATIONAL AG
Approved: May 27, 2003 | RLD: No | RS: No | Type: RX